FAERS Safety Report 7006322-2 (Version None)
Quarter: 2010Q3

REPORT INFORMATION
  Report Type: 
  Country: None (occurrence: None)
  Receive Date: 20100921
  Receipt Date: 20100913
  Transmission Date: 20110219
  Serious: Yes (Hospitalization, Other)
  Sender: FDA-Public Use
  Company Number: US-PFIZER INC-2010107520

PATIENT
  Sex: Female

DRUGS (3)
  1. CHANTIX [Suspect]
     Indication: SMOKING CESSATION THERAPY
     Dosage: UNK
     Route: 048
     Dates: start: 20080801
  2. TYLENOL [Concomitant]
     Indication: PAIN
     Dosage: 1000 MG, 4X/DAY, (500 MG TWO TABLETS)
     Route: 048
  3. GABAPENTIN [Concomitant]
     Indication: FIBROMYALGIA
     Dosage: 900 MG, 2X/DAY, (300 MG 3 CAPSULES)
     Route: 048

REACTIONS (3)
  - CATARACT [None]
  - CONFUSIONAL STATE [None]
  - PNEUMONIA BACTERIAL [None]
